FAERS Safety Report 25829665 (Version 1)
Quarter: 2025Q3

REPORT INFORMATION
  Report Type: Report from Study
  Country: US (occurrence: US)
  Receive Date: 20250922
  Receipt Date: 20250922
  Transmission Date: 20251021
  Serious: No
  Sender: TRAVERE THERAPEUTICS
  Company Number: US-TRAVERE-2025TVT01233

PATIENT
  Age: 31 Year
  Sex: Female

DRUGS (5)
  1. FILSPARI [Suspect]
     Active Substance: SPARSENTAN
     Indication: Product used for unknown indication
     Route: 048
     Dates: start: 20250512
  2. VASOTEC [Concomitant]
     Active Substance: ENALAPRIL MALEATE
  3. Vitamin D-2 [Concomitant]
  4. AMOXIL [Concomitant]
     Active Substance: AMOXICILLIN
     Dates: start: 20250417, end: 20250427
  5. MEDROL [Concomitant]
     Active Substance: METHYLPREDNISOLONE

REACTIONS (10)
  - Blood chloride increased [Recovering/Resolving]
  - Blood urea increased [Recovering/Resolving]
  - Blood glucose decreased [Unknown]
  - Blood creatinine increased [Unknown]
  - Alanine aminotransferase decreased [Unknown]
  - Mean cell haemoglobin decreased [Unknown]
  - Neutrophil count increased [Unknown]
  - Lymphocyte count decreased [Unknown]
  - Urine protein/creatinine ratio decreased [Unknown]
  - Protein urine present [Unknown]

NARRATIVE: CASE EVENT DATE: 20250603
